FAERS Safety Report 9519451 (Version 2)
Quarter: 2013Q3

REPORT INFORMATION
  Report Type: Spontaneous
  Country: FR (occurrence: FR)
  Receive Date: 20130912
  Receipt Date: 20130918
  Transmission Date: 20140515
  Serious: Yes (Other)
  Sender: FDA-Public Use
  Company Number: FR-GLAXOSMITHKLINE-B0921420A

PATIENT
  Age: 52 Year
  Sex: Male

DRUGS (6)
  1. NEORAL [Suspect]
     Indication: PRODUCT USED FOR UNKNOWN INDICATION
     Dosage: 200MG PER DAY
     Route: 048
     Dates: start: 20090602, end: 20120301
  2. SORIATANE [Suspect]
     Indication: PSORIASIS
     Route: 048
     Dates: start: 20120314, end: 20120702
  3. HUMIRA [Suspect]
     Indication: PSORIASIS
     Route: 058
     Dates: start: 20120807, end: 20130212
  4. SPECIAFOLDINE [Suspect]
     Indication: PRODUCT USED FOR UNKNOWN INDICATION
     Dosage: .3571MG PER DAY
     Route: 048
     Dates: start: 20130105, end: 20130217
  5. METHOTREXATE SODIUM [Suspect]
     Indication: PSORIASIS
     Dosage: .5MG PER DAY
     Route: 048
     Dates: start: 20130103, end: 20130214
  6. KARDEGIC [Suspect]
     Indication: PRODUCT USED FOR UNKNOWN INDICATION
     Route: 048
     Dates: start: 20130131

REACTIONS (1)
  - Tachycardia [Recovered/Resolved]
